FAERS Safety Report 5924133-3 (Version None)
Quarter: 2008Q4

REPORT INFORMATION
  Report Type: 
  Country: None (occurrence: None)
  Receive Date: 20081020
  Receipt Date: 20081008
  Transmission Date: 20090506
  Serious: Yes (Other)
  Sender: FDA-Public Use
  Company Number: US-WYE-H06295508

PATIENT
  Age: 4 Year

DRUGS (2)
  1. PROTONIX [Suspect]
     Indication: STRESS ULCER
     Dosage: ONCE DAILY DOSE UNSPECIFIED
     Route: 042
  2. PROTONIX [Suspect]
     Indication: PROPHYLAXIS

REACTIONS (1)
  - UPPER GASTROINTESTINAL HAEMORRHAGE [None]
